FAERS Safety Report 17798954 (Version 1)
Quarter: 2020Q2

REPORT INFORMATION
  Report Type: Spontaneous
  Country: MX (occurrence: MX)
  Receive Date: 20200518
  Receipt Date: 20200518
  Transmission Date: 20200714
  Serious: Yes (Other)
  Sender: FDA-Public Use
  Company Number: MX-SILVERGATE PHARMACEUTICALS, INC.-2020SIL00023

PATIENT
  Age: 21 Year
  Sex: Male

DRUGS (5)
  1. CYTARABINE (ARA-C) [Suspect]
     Active Substance: CYTARABINE
     Indication: ACUTE LYMPHOCYTIC LEUKAEMIA
     Dosage: (5 SESSIONS)
     Route: 037
  2. METHOTREXATE. [Suspect]
     Active Substance: METHOTREXATE
     Indication: ACUTE LYMPHOCYTIC LEUKAEMIA
     Dosage: (5 SESSIONS)
     Route: 037
  3. DEXAMETHASONE. [Concomitant]
     Active Substance: DEXAMETHASONE
     Dosage: (5 SESSIONS)
     Route: 037
  4. VINCRISTINE [Concomitant]
     Active Substance: VINCRISTINE
     Dosage: (5 SESSIONS)
     Route: 042
  5. DOXORUBICIN [Concomitant]
     Active Substance: DOXORUBICIN
     Dosage: (5 SESSIONS)
     Route: 042

REACTIONS (4)
  - Myelopathy [Recovering/Resolving]
  - Neurotoxicity [Recovering/Resolving]
  - Loss of consciousness [Recovered/Resolved]
  - Deafness neurosensory [Not Recovered/Not Resolved]
